FAERS Safety Report 6749383-8 (Version None)
Quarter: 2010Q2

REPORT INFORMATION
  Report Type: 
  Country: None (occurrence: None)
  Receive Date: 20100601
  Receipt Date: 20100520
  Transmission Date: 20101027
  Serious: Yes (Hospitalization)
  Sender: FDA-Public Use
  Company Number: SE-ROCHE-704415

PATIENT
  Age: 29 Year
  Sex: Female

DRUGS (6)
  1. ROACTEMRA [Suspect]
     Indication: RHEUMATOID ARTHRITIS
     Dosage: DRUG NAME: ROACTEMRA CONC F SOL F INF 20 MG/DL, FREQUENCY: UNKNOWN
     Route: 042
     Dates: start: 20100331
  2. METHOTREXATE [Concomitant]
     Dosage: DRUG NAME: METHOTREXATE ORION TABL 2,5 MG,  DOSE, FREQUENCY AND INDICATION: UNKNOWN
     Route: 065
  3. FOLACIN [Concomitant]
     Dosage: DRUG NAME: FOLACIN TABL 5 MG, DOSE, FREQUENCY AND INDICATION: UNKNOWN
     Route: 065
  4. BEHEPAN [Concomitant]
     Dosage: DRUG NAME: BEHEPAN FC TABL 1 MG, DOSE, FREQUENCY AND INDICATION: UNKNOWN
     Route: 065
  5. DUROFERON [Concomitant]
     Dosage: DRUG NAME: DUROFERON TABL 100 MG FE2+, DOSE, FREQUENCY AND INDICATION: UNKNOWN
     Route: 065
  6. CALCICHEW D3 [Concomitant]
     Dosage: DRUG NAME: CALCICHEW D3 CHEWABLE TABL 500 MG/ 400IE, DOSE, FREQUENCY AND INDICATION: UNKNOWN
     Route: 065

REACTIONS (1)
  - PARAESTHESIA [None]
